FAERS Safety Report 7071316-8 (Version None)
Quarter: 2010Q4

REPORT INFORMATION
  Report Type: 
  Country: None (occurrence: None)
  Receive Date: 20101029
  Receipt Date: 20101021
  Transmission Date: 20110411
  Serious: Yes (Hospitalization)
  Sender: FDA-Public Use
  Company Number: ES-JNJFOC-20101004654

PATIENT
  Sex: Female
  Weight: 70.8 kg

DRUGS (10)
  1. USTEKINUMAB [Suspect]
     Indication: ERYTHRODERMIC PSORIASIS
     Route: 058
  2. USTEKINUMAB [Suspect]
     Route: 058
  3. USTEKINUMAB [Suspect]
     Route: 058
  4. USTEKINUMAB [Suspect]
     Route: 058
  5. USTEKINUMAB [Suspect]
     Route: 058
  6. USTEKINUMAB [Suspect]
     Indication: PSORIASIS
     Route: 058
  7. USTEKINUMAB [Suspect]
     Route: 058
  8. USTEKINUMAB [Suspect]
     Route: 058
  9. USTEKINUMAB [Suspect]
     Route: 058
  10. USTEKINUMAB [Suspect]
     Route: 058

REACTIONS (2)
  - ERYTHRODERMIC PSORIASIS [None]
  - OFF LABEL USE [None]
